FAERS Safety Report 6111436-5 (Version None)
Quarter: 2009Q1

REPORT INFORMATION
  Report Type: 
  Country: None (occurrence: None)
  Receive Date: 20090309
  Receipt Date: 20090116
  Transmission Date: 20090719
  Serious: Yes (Death)
  Sender: FDA-Public Use
  Company Number: 005267

PATIENT
  Age: 57 Year
  Sex: Male

DRUGS (3)
  1. PLETAL [Suspect]
     Indication: THROMBOTIC CEREBRAL INFARCTION
     Dosage: 100 MG, BID, ORAL
     Route: 048
     Dates: start: 20041221, end: 20081112
  2. ZONISAMIDE [Concomitant]
  3. GASTER D KOR (FAMOTIDINE) [Concomitant]

REACTIONS (1)
  - CARDIO-RESPIRATORY ARREST [None]
